FAERS Safety Report 15105648 (Version 1)
Quarter: 2018Q3

REPORT INFORMATION
  Report Type: Spontaneous
  Country: FR (occurrence: FR)
  Receive Date: 20180704
  Receipt Date: 20180704
  Transmission Date: 20181010
  Serious: Yes (Other)
  Sender: FDA-Public Use
  Company Number: FR-009507513-1806FRA011242

PATIENT
  Age: 37 Year
  Sex: Female
  Weight: 51 kg

DRUGS (7)
  1. LOXEN 50 LP [Concomitant]
     Indication: HYPERTENSION
     Dosage: 50 MG X 2
     Dates: start: 20180605
  2. LOXEN 20 [Concomitant]
     Indication: HYPERTENSION
     Dosage: 20 MG X 2 PER OS
     Route: 048
     Dates: start: 20180519, end: 20180605
  3. ALDOMET [Concomitant]
     Active Substance: METHYLDOPA
     Indication: HYPERTENSION
     Dosage: 250 MG X 3
     Dates: start: 20180605
  4. CELESTENE 4MG/1ML [Suspect]
     Active Substance: BETAMETHASONE
     Indication: MATERNAL THERAPY TO ENHANCE FOETAL LUNG MATURITY
     Dosage: 12 MG BY IM ROUTE X 2
     Route: 030
     Dates: start: 20180612, end: 20180613
  5. LEVOTHYROX [Concomitant]
     Active Substance: LEVOTHYROXINE
     Dosage: 1 PER DAY PER OS
     Route: 048
     Dates: start: 20180301
  6. UTROGESTAN [Concomitant]
     Active Substance: PROGESTERONE
     Indication: THREATENED LABOUR
     Dosage: 200 MG, PER DAY
     Route: 048
     Dates: start: 20180325
  7. PROPYLEX 50 [Concomitant]
     Dosage: 3 PER DAY PER OS
     Route: 048
     Dates: start: 20180123

REACTIONS (3)
  - Caesarean section [Recovered/Resolved]
  - Exposure during pregnancy [Recovered/Resolved]
  - Premature delivery [Recovered/Resolved]

NARRATIVE: CASE EVENT DATE: 20180616
